FAERS Safety Report 17504829 (Version 2)
Quarter: 2020Q1

REPORT INFORMATION
  Report Type: Report from Study
  Country: CO (occurrence: CO)
  Receive Date: 20200305
  Receipt Date: 20200324
  Transmission Date: 20200409
  Serious: Yes (Death, Hospitalization, Other)
  Sender: FDA-Public Use
  Company Number: CO-ASTELLAS-2020US003912

PATIENT
  Age: 88 Year
  Sex: Male
  Weight: 52 kg

DRUGS (1)
  1. ENZALUTAMIDE [Suspect]
     Active Substance: ENZALUTAMIDE
     Indication: HORMONE-REFRACTORY PROSTATE CANCER
     Route: 048
     Dates: start: 20191218, end: 20200217

REACTIONS (23)
  - Death [Fatal]
  - Malignant neoplasm progression [Unknown]
  - Pleural effusion [Unknown]
  - Epistaxis [Recovered/Resolved with Sequelae]
  - Drug ineffective [Unknown]
  - Hepatic cirrhosis [Unknown]
  - Malaise [Not Recovered/Not Resolved]
  - Gastritis [Unknown]
  - Somnolence [Unknown]
  - Oesophageal intramural haematoma [Not Recovered/Not Resolved]
  - Haemoglobin decreased [Not Recovered/Not Resolved]
  - Renal failure [Unknown]
  - Decreased appetite [Not Recovered/Not Resolved]
  - Body height decreased [Not Recovered/Not Resolved]
  - Tremor [Unknown]
  - Peripheral swelling [Unknown]
  - Asthenia [Unknown]
  - Oesophageal haemorrhage [Recovered/Resolved]
  - General physical health deterioration [Unknown]
  - Dysarthria [Unknown]
  - Weight decreased [Not Recovered/Not Resolved]
  - Nausea [Recovering/Resolving]
  - Melaena [Recovered/Resolved]

NARRATIVE: CASE EVENT DATE: 2019
